FAERS Safety Report 4319333-2 (Version None)
Quarter: 2004Q1

REPORT INFORMATION
  Report Type: 
  Country: None (occurrence: None)
  Receive Date: 20040319
  Receipt Date: 20040209
  Transmission Date: 20041129
  Serious: No
  Sender: FDA-Public Use
  Company Number: PHBS2004JP01924

PATIENT
  Age: 23 Year
  Sex: Male

DRUGS (1)
  1. TEGRETOL [Suspect]
     Indication: EPILEPSY
     Route: 048

REACTIONS (1)
  - AMNESIA [None]
